FAERS Safety Report 8978861 (Version 1)
Quarter: 2012Q4

REPORT INFORMATION
  Report Type: 
  Country: IL (occurrence: IL)
  Receive Date: 20121221
  Receipt Date: 20121221
  Transmission Date: 20130627
  Serious: Yes (Death)
  Sender: FDA-Public Use
  Company Number: IL-009507513-1212ISR007934

PATIENT

DRUGS (1)
  1. TEMOZOLOMIDE [Suspect]

REACTIONS (1)
  - Liver injury [Fatal]
